FAERS Safety Report 18721272 (Version 1)
Quarter: 2021Q1

REPORT INFORMATION
  Report Type: Spontaneous
  Country: BR (occurrence: BR)
  Receive Date: 20210109
  Receipt Date: 20210109
  Transmission Date: 20210419
  Serious: Yes (Death)
  Sender: FDA-Public Use
  Company Number: NVSC2021BR004035

PATIENT
  Sex: Male

DRUGS (2)
  1. ONBRIZE [Suspect]
     Active Substance: INDACATEROL MALEATE
     Dosage: 300 UG
     Route: 065
  2. ONBRIZE [Suspect]
     Active Substance: INDACATEROL MALEATE
     Indication: EMPHYSEMA
     Dosage: 150 UG
     Route: 065

REACTIONS (1)
  - Lung disorder [Fatal]

NARRATIVE: CASE EVENT DATE: 20200920
